FAERS Safety Report 5088747-8 (Version None)
Quarter: 2006Q3

REPORT INFORMATION
  Report Type: 
  Country: None (occurrence: None)
  Receive Date: 20060825
  Receipt Date: 20060817
  Transmission Date: 20061208
  Serious: Yes (Hospitalization)
  Sender: FDA-Public Use
  Company Number: JP-JPN-A200603027

PATIENT
  Age: 72 Year
  Sex: Male

DRUGS (10)
  1. ALKERAN [Suspect]
     Indication: MULTIPLE MYELOMA
     Dosage: 14MG PER DAY
     Route: 048
     Dates: start: 20060720, end: 20060722
  2. MICARDIS [Concomitant]
     Route: 048
  3. MORPHINE [Concomitant]
     Route: 048
  4. SOLANAX [Concomitant]
     Route: 048
  5. ACINON [Concomitant]
     Route: 048
  6. HARNAL [Concomitant]
     Route: 048
  7. OXYCONTIN [Concomitant]
     Route: 048
  8. BISPHONAL [Concomitant]
     Route: 042
  9. TOFRANIL [Concomitant]
     Route: 048
  10. GOSHA-JINKI-GAN [Concomitant]
     Route: 048

REACTIONS (1)
  - INTERSTITIAL LUNG DISEASE [None]
